FAERS Safety Report 9828779 (Version 1)
Quarter: 2014Q1

REPORT INFORMATION
  Report Type: Spontaneous
  Country: US (occurrence: US)
  Receive Date: 20140117
  Receipt Date: 20140117
  Transmission Date: 20141002
  Serious: No
  Sender: FDA-Public Use
  Company Number: US-009507513-1401USA006583

PATIENT
  Age: 61 Year
  Sex: Female

DRUGS (1)
  1. ASMANEX TWISTHALER [Suspect]
     Indication: ASTHMA
     Dosage: 220 MICROGRAM, ONE PUFF A DAY
     Route: 055

REACTIONS (3)
  - Incorrect dose administered [Unknown]
  - Product quality control issue [Unknown]
  - Cough [Not Recovered/Not Resolved]
